FAERS Safety Report 9207318 (Version 1)
Quarter: 2013Q2

REPORT INFORMATION
  Report Type: Report from Study
  Country: US (occurrence: US)
  Receive Date: 20130403
  Receipt Date: 20130403
  Transmission Date: 20140414
  Serious: Yes (Death, Other)
  Sender: FDA-Public Use
  Company Number: US-ROCHE-1056161

PATIENT
  Sex: Male

DRUGS (2)
  1. ZELBORAF [Suspect]
     Indication: PRODUCT USED FOR UNKNOWN INDICATION
     Dosage: 8 PILLS
     Route: 065
  2. ZELBORAF [Suspect]
     Dosage: 6 PILLS
     Route: 065

REACTIONS (14)
  - Death [Fatal]
  - Unevaluable event [Unknown]
  - Hyperkeratosis [Unknown]
  - Squamous cell carcinoma [Unknown]
  - Fatigue [Unknown]
  - Sunburn [Unknown]
  - Unevaluable event [Unknown]
  - Unevaluable event [Unknown]
  - Alopecia [Unknown]
  - Insomnia [Unknown]
  - Eructation [Unknown]
  - Decreased appetite [Unknown]
  - Hyperkeratosis [Unknown]
  - Hyperkeratosis [Unknown]
